FAERS Safety Report 21609172 (Version 1)
Quarter: 2022Q4

REPORT INFORMATION
  Report Type: Spontaneous
  Country: US (occurrence: None)
  Receive Date: 20221116
  Receipt Date: 20221116
  Transmission Date: 20230113
  Serious: Yes (Hospitalization)
  Sender: FDA-Public Use
  Company Number: None

PATIENT
  Sex: Male
  Weight: 75.2 kg

DRUGS (23)
  1. ABIRATERONE [Suspect]
     Active Substance: ABIRATERONE
     Indication: Prostate cancer
     Dosage: 1000MG DAILY ORAL?
     Route: 048
  2. CALCIUM [Concomitant]
  3. CLARITIN [Concomitant]
  4. VITAMIN B12 [Concomitant]
  5. ATORVASTATIN CALCIUM [Concomitant]
  6. MYRBETRIQ [Concomitant]
  7. ASPIRIN [Concomitant]
     Active Substance: ASPIRIN
  8. AMBIEN [Concomitant]
  9. HYDROXYZINE [Concomitant]
  10. FOLIC ACID [Concomitant]
  11. FLUOXETINE [Concomitant]
  12. CARVEDILOL [Concomitant]
     Active Substance: CARVEDILOL
  13. VITAMIN D2 [Concomitant]
     Active Substance: ERGOCALCIFEROL
  14. COLACE [Concomitant]
  15. SEVELAMER CLINDAMYCIN GEL [Concomitant]
  16. ACETAMINOPHEN [Concomitant]
  17. ASCORBIC ACID [Concomitant]
  18. CALCIUM CARBONATE [Concomitant]
  19. ACIDOPHLUS [Concomitant]
  20. PANTOPRAZOLE SODIUM [Concomitant]
  21. SIMETHICONE [Concomitant]
  22. LORATADINE [Concomitant]
  23. MILK OF MAGNESIUM [Concomitant]

REACTIONS (1)
  - Hospitalisation [None]
